FAERS Safety Report 21281061 (Version 3)
Quarter: 2022Q4

REPORT INFORMATION
  Report Type: Report from Study
  Country: CA (occurrence: CA)
  Receive Date: 20220901
  Receipt Date: 20221122
  Transmission Date: 20230112
  Serious: Yes (Other)
  Sender: FDA-Public Use
  Company Number: CA-JNJFOC-20220834214

PATIENT
  Age: 40 Year
  Sex: Female

DRUGS (1)
  1. REMICADE [Suspect]
     Active Substance: INFLIXIMAB
     Indication: Crohn^s disease
     Dosage: ON 27-SEP-2022, THE PATIENT RECEIVED 90TH INFLIXIMAB INFUSION AT DOSE OF 600MG AND PARTIAL HARVEY-BR
     Route: 042
     Dates: start: 20131126

REACTIONS (2)
  - Crohn^s disease [Unknown]
  - COVID-19 [Not Recovered/Not Resolved]

NARRATIVE: CASE EVENT DATE: 20220815
